FAERS Safety Report 17026938 (Version 1)
Quarter: 2019Q4

REPORT INFORMATION
  Report Type: Spontaneous
  Country: US (occurrence: US)
  Receive Date: 20191112
  Receipt Date: 20191112
  Transmission Date: 20200122
  Serious: Yes (Hospitalization)
  Sender: FDA-Public Use
  Company Number: None

PATIENT
  Age: 68 Year
  Sex: Female

DRUGS (22)
  1. DORZOL/TIMOL [Concomitant]
     Dates: start: 20180320
  2. LATANOPROST. [Concomitant]
     Active Substance: LATANOPROST
     Dates: start: 20180320
  3. MOMETASONE [Concomitant]
     Active Substance: MOMETASONE
     Dates: start: 20180320
  4. NASACORT [Concomitant]
     Active Substance: TRIAMCINOLONE ACETONIDE
     Dates: start: 20060930
  5. ATORVASTATIN [Concomitant]
     Active Substance: ATORVASTATIN
     Dates: start: 20180320
  6. CARVEDILOL. [Concomitant]
     Active Substance: CARVEDILOL
     Dates: start: 20191018
  7. QVAR REDIHA [Concomitant]
     Dates: start: 20181012
  8. ACTEMRA [Suspect]
     Active Substance: TOCILIZUMAB
     Indication: RHEUMATOID ARTHRITIS
     Dosage: ?          OTHER FREQUENCY:WEEKLY;OTHER ROUTE:SYRINGE?
     Dates: start: 20170628
  9. AMLODIPINE [Concomitant]
     Active Substance: AMLODIPINE BESYLATE
     Dates: start: 20190925
  10. POT CL [Concomitant]
     Dates: start: 20190213
  11. QVAR [Concomitant]
     Active Substance: BECLOMETHASONE DIPROPIONATE
     Dates: start: 20180320
  12. COSOPT [Concomitant]
     Active Substance: DORZOLAMIDE HYDROCHLORIDE\TIMOLOL MALEATE
     Dates: start: 20060930
  13. LEVETIRACETA [Concomitant]
     Dates: start: 20190925
  14. LEVOTHYROXIN [Concomitant]
     Active Substance: LEVOTHYROXINE
     Dates: start: 20180320
  15. MONTELUKAST [Concomitant]
     Active Substance: MONTELUKAST SODIUM
     Dates: start: 20180320
  16. FUROSEMIDE. [Concomitant]
     Active Substance: FUROSEMIDE
     Dates: start: 20191105
  17. HYDROXYCHLOR [Concomitant]
     Active Substance: HYDROXYCHLOROQUINE
     Dates: start: 20190925
  18. LOSARTAN. [Concomitant]
     Active Substance: LOSARTAN
     Dates: start: 20180320
  19. RHOPRESSA [Concomitant]
     Active Substance: NETARSUDIL MESYLATE
     Dates: start: 20190715
  20. HYDROCHLOROT [Concomitant]
     Active Substance: HYDROCHLOROTHIAZIDE
     Dates: start: 20190124
  21. PHOSPHORUS [Concomitant]
     Active Substance: PHOSPHORUS
     Dates: start: 20190926
  22. POT CHLORIDE [Concomitant]
     Active Substance: POTASSIUM CHLORIDE
     Dates: start: 20060930

REACTIONS (5)
  - Brain operation [None]
  - Inflammation [None]
  - Seizure [None]
  - Peripheral swelling [None]
  - Pain in extremity [None]
